FAERS Safety Report 7526201-1 (Version None)
Quarter: 2011Q2

REPORT INFORMATION
  Report Type: 
  Country: None (occurrence: None)
  Receive Date: 20110606
  Receipt Date: 20101025
  Transmission Date: 20111010
  Serious: No
  Sender: FDA-Public Use
  Company Number: US-BRISTOL-MYERS SQUIBB COMPANY-15350010

PATIENT
  Sex: Female

DRUGS (4)
  1. NORVIR [Suspect]
  2. REYATAZ [Suspect]
  3. ISENTRESS [Suspect]
  4. SUSTIVA [Suspect]

REACTIONS (1)
  - RASH [None]
